FAERS Safety Report 5756341-9 (Version None)
Quarter: 2008Q2

REPORT INFORMATION
  Report Type: 
  Country: None (occurrence: None)
  Receive Date: 20080528
  Receipt Date: 20080528
  Transmission Date: 20081010
  Serious: Yes (Life-Threatening)
  Sender: FDA-Public Use
  Company Number: None

PATIENT
  Age: 35 Year
  Sex: Female
  Weight: 90.7194 kg

DRUGS (2)
  1. CHANTIX [Suspect]
     Indication: SMOKING CESSATION THERAPY
     Dosage: (DURATION: A FEW MONTHS)
  2. CHANTIX [Suspect]

REACTIONS (3)
  - ABNORMAL BEHAVIOUR [None]
  - COMPULSIONS [None]
  - OBSESSIVE-COMPULSIVE DISORDER [None]
